FAERS Safety Report 21254047 (Version 2)
Quarter: 2022Q3

REPORT INFORMATION
  Report Type: Spontaneous
  Country: US (occurrence: US)
  Receive Date: 20220825
  Receipt Date: 20220922
  Transmission Date: 20221027
  Serious: Yes (Hospitalization)
  Sender: FDA-Public Use
  Company Number: US-PFIZER INC-202201088274

PATIENT
  Age: 73 Year
  Sex: Female
  Weight: 90.703 kg

DRUGS (2)
  1. PAXLOVID [Suspect]
     Active Substance: NIRMATRELVIR\RITONAVIR
     Indication: COVID-19 treatment
     Dosage: [PF-07321332 300 MG]/[RITONAVIR 100 MG]; 2X/DAY;
     Dates: start: 20220815, end: 20220819
  2. NAPROXEN [Concomitant]
     Active Substance: NAPROXEN
     Indication: Arthritis
     Dosage: UNK
     Dates: start: 20220201

REACTIONS (2)
  - COVID-19 [Recovering/Resolving]
  - Disease recurrence [Recovering/Resolving]

NARRATIVE: CASE EVENT DATE: 20220820
